FAERS Safety Report 18546914 (Version 2)
Quarter: 2021Q1

REPORT INFORMATION
  Report Type: Report from Study
  Country: DE (occurrence: DE)
  Receive Date: 20201125
  Receipt Date: 20210106
  Transmission Date: 20210419
  Serious: Yes (Hospitalization)
  Sender: FDA-Public Use
  Company Number: DE-EMD SERONO-9177716

PATIENT
  Age: 81 Year
  Sex: Male
  Weight: 80 kg

DRUGS (10)
  1. NEBIVOLOL HYDROCHLORIDE [Concomitant]
     Active Substance: NEBIVOLOL HYDROCHLORIDE
     Indication: PRODUCT USED FOR UNKNOWN INDICATION
  2. BECLOMETASONE DIPROPIONATE [Concomitant]
     Active Substance: BECLOMETHASONE DIPROPIONATE
     Indication: PRODUCT USED FOR UNKNOWN INDICATION
  3. LERCANIDIPINE HYDROCHLORIDE [Concomitant]
     Active Substance: LERCANIDIPINE HYDROCHLORIDE
     Indication: PRODUCT USED FOR UNKNOWN INDICATION
  4. TIOTROPIUM BROMIDE [Concomitant]
     Active Substance: TIOTROPIUM BROMIDE
     Indication: PRODUCT USED FOR UNKNOWN INDICATION
  5. AVELUMAB [Suspect]
     Active Substance: AVELUMAB
     Route: 042
     Dates: start: 20200715
  6. AVELUMAB [Suspect]
     Active Substance: AVELUMAB
     Route: 042
     Dates: start: 20200731
  7. ATORVASTATIN CALCIUM. [Concomitant]
     Active Substance: ATORVASTATIN CALCIUM
     Indication: PRODUCT USED FOR UNKNOWN INDICATION
  8. LEVOTHYROXINE SODIUM. [Concomitant]
     Active Substance: LEVOTHYROXINE SODIUM
     Indication: PRODUCT USED FOR UNKNOWN INDICATION
  9. TELMISARTAN. [Concomitant]
     Active Substance: TELMISARTAN
     Indication: PRODUCT USED FOR UNKNOWN INDICATION
  10. AVELUMAB [Suspect]
     Active Substance: AVELUMAB
     Indication: NEUROENDOCRINE CARCINOMA OF THE SKIN
     Route: 042
     Dates: start: 20200320

REACTIONS (1)
  - Blood creatine phosphokinase MB increased [Recovered/Resolved]

NARRATIVE: CASE EVENT DATE: 20200723
